FAERS Safety Report 10263031 (Version 2)
Quarter: 2014Q2

REPORT INFORMATION
  Report Type: Report from Study
  Country: US (occurrence: US)
  Receive Date: 20140626
  Receipt Date: 20140626
  Transmission Date: 20141212
  Serious: Yes (Other)
  Sender: FDA-Public Use
  Company Number: US-MYLANLABS-2013S1027456

PATIENT
  Age: 22 Year
  Sex: Female

DRUGS (4)
  1. CLOZAPINE TABLETS [Suspect]
     Indication: SCHIZOAFFECTIVE DISORDER
     Route: 048
     Dates: start: 2013, end: 20131202
  2. DIVALPROEX [Concomitant]
  3. CLONAZEPAM [Concomitant]
  4. LITHIUM [Concomitant]

REACTIONS (1)
  - Granulocytopenia [Recovered/Resolved]
